FAERS Safety Report 7058049-9 (Version None)
Quarter: 2010Q4

REPORT INFORMATION
  Report Type: 
  Country: None (occurrence: None)
  Receive Date: 20101022
  Receipt Date: 20101018
  Transmission Date: 20110411
  Serious: Yes (Other)
  Sender: FDA-Public Use
  Company Number: US-ALLERGAN-1013376US

PATIENT
  Age: 84 Year
  Sex: Female

DRUGS (1)
  1. REFRESH LIQUIGEL OPHTHALMIC [Suspect]
     Indication: DRY EYE
     Dosage: 1 GTT, SINGLE
     Route: 047
     Dates: start: 20101017, end: 20101017

REACTIONS (9)
  - BLINDNESS UNILATERAL [None]
  - EYE INFECTION [None]
  - EYE IRRITATION [None]
  - EYE SWELLING [None]
  - IRIDOCYCLITIS [None]
  - OCULAR HYPERAEMIA [None]
  - RHINALGIA [None]
  - VISION BLURRED [None]
  - VISUAL IMPAIRMENT [None]
